FAERS Safety Report 8987319 (Version 1)
Quarter: 2012Q4

REPORT INFORMATION
  Report Type: 
  Country: CN (occurrence: CN)
  Receive Date: 20121227
  Receipt Date: 20121227
  Transmission Date: 20130627
  Serious: Yes (Other)
  Sender: FDA-Public Use
  Company Number: CN-BAYER-2012-133567

PATIENT
  Age: 83 Year
  Sex: Male
  Weight: 70 kg

DRUGS (1)
  1. AVELOX [Suspect]
     Indication: THERAPEUTIC PROCEDURE
     Dosage: 400 mg, QD
     Route: 048
     Dates: start: 20090214, end: 20090216

REACTIONS (2)
  - Psychiatric symptom [Recovered/Resolved]
  - Urinary incontinence [Recovered/Resolved]
